FAERS Safety Report 4619494-1 (Version None)
Quarter: 2005Q2

REPORT INFORMATION
  Report Type: 
  Country: None (occurrence: None)
  Receive Date: 20050321
  Receipt Date: 20040707
  Transmission Date: 20051028
  Serious: Yes (Other)
  Sender: FDA-Public Use
  Company Number: 2004-07-0466

PATIENT
  Age: 29 Year
  Sex: Female
  Weight: 54.8852 kg

DRUGS (4)
  1. PEG-INTRON [Suspect]
     Indication: HEPATITIS C
     Dosage: 50 MCG SDQ QW SUBCUTANEOUS
     Route: 058
     Dates: start: 20040630, end: 20040630
  2. ZOLOFT [Concomitant]
  3. CELEXA [Concomitant]
  4. INSULIN [Concomitant]

REACTIONS (2)
  - DRUG EXPOSURE DURING PREGNANCY [None]
  - INTRA-UTERINE DEATH [None]
